FAERS Safety Report 7018151-4 (Version None)
Quarter: 2010Q3

REPORT INFORMATION
  Report Type: 
  Country: None (occurrence: None)
  Receive Date: 20100928
  Receipt Date: 20100927
  Transmission Date: 20110219
  Serious: Yes (Death, Other)
  Sender: FDA-Public Use
  Company Number: ES-ROCHE-684042

PATIENT

DRUGS (2)
  1. CAPECITABINE [Suspect]
     Indication: BREAST CANCER
     Dosage: DRUG WAS USED FOR 14 DAYS EVERY 21 DAYS.
     Route: 048
  2. BLINDED SORAFENIB [Suspect]
     Indication: BREAST CANCER
     Route: 048

REACTIONS (6)
  - DEATH [None]
  - DIARRHOEA [None]
  - DYSPNOEA [None]
  - MUCOSAL INFLAMMATION [None]
  - NEUTROPENIA [None]
  - PALMAR-PLANTAR ERYTHRODYSAESTHESIA SYNDROME [None]
